FAERS Safety Report 10748758 (Version 1)
Quarter: 2015Q1

REPORT INFORMATION
  Report Type: Spontaneous
  Country: US (occurrence: None)
  Receive Date: 20150128
  Receipt Date: 20150128
  Transmission Date: 20150721
  Serious: No
  Sender: FDA-Public Use
  Company Number: None

PATIENT
  Age: 67 Year
  Sex: Female
  Weight: 61.24 kg

DRUGS (1)
  1. WELCHOL [Suspect]
     Active Substance: COLESEVELAM HYDROCHLORIDE
     Indication: BLOOD CHOLESTEROL INCREASED
     Dosage: 1 TABLET TAKEN BY MOUTH
     Dates: start: 20150121, end: 20150123

REACTIONS (6)
  - Insomnia [None]
  - Abdominal distension [None]
  - Chills [None]
  - Abdominal pain lower [None]
  - Dizziness [None]
  - Drug dose omission [None]

NARRATIVE: CASE EVENT DATE: 20150124
